FAERS Safety Report 9354365 (Version 1)
Quarter: 2013Q2

REPORT INFORMATION
  Report Type: Spontaneous
  Country: MX (occurrence: MX)
  Receive Date: 20130618
  Receipt Date: 20130618
  Transmission Date: 20140414
  Serious: Yes (Other)
  Sender: FDA-Public Use
  Company Number: MX-ASTRAZENECA-2013SE42919

PATIENT
  Age: 31310 Day
  Sex: Male
  Weight: 63.5 kg

DRUGS (2)
  1. CASODEX [Suspect]
     Indication: PROSTATE CANCER
     Route: 048
     Dates: start: 2008
  2. XATRAL [Concomitant]
     Route: 048
     Dates: start: 2008

REACTIONS (1)
  - Malignant neoplasm progression [Unknown]
